FAERS Safety Report 8910168 (Version 1)
Quarter: 2012Q4

REPORT INFORMATION
  Report Type: 
  Country: DE (occurrence: PT)
  Receive Date: 20121115
  Receipt Date: 20121115
  Transmission Date: 20130627
  Serious: Yes (Other)
  Sender: FDA-Public Use
  Company Number: PT-BRISTOL-MYERS SQUIBB COMPANY-17111865

PATIENT
  Age: 63 Year
  Sex: Female
  Weight: 109 kg

DRUGS (2)
  1. RISIDON [Suspect]
     Indication: TYPE 2 DIABETES MELLITUS
     Dosage: Formulation-Risidon Film-Coated tabs.09Apr12-20Apr12.
May12-May12
     Route: 048
     Dates: start: 20120409, end: 201205
  2. AMLODIPINE [Concomitant]
     Indication: HYPERTENSION
     Route: 048
     Dates: start: 2011

REACTIONS (2)
  - Acne [Recovered/Resolved]
  - Pruritus generalised [Recovered/Resolved]
